FAERS Safety Report 25219814 (Version 2)
Quarter: 2025Q2

REPORT INFORMATION
  Report Type: Spontaneous
  Country: HR (occurrence: HR)
  Receive Date: 20250421
  Receipt Date: 20250507
  Transmission Date: 20250717
  Serious: Yes (Other)
  Sender: BAYER HEALTHCARE PHARMACEUTICALS INC.
  Company Number: HR-BAYER-2025A050061

PATIENT
  Age: 60 Year
  Sex: Male
  Weight: 77 kg

DRUGS (9)
  1. NUBEQA [Suspect]
     Active Substance: DAROLUTAMIDE
     Indication: Hormone-dependent prostate cancer
     Dosage: 600 MG, BID
     Dates: start: 202407, end: 202504
  2. NUBEQA [Suspect]
     Active Substance: DAROLUTAMIDE
     Indication: Metastases to lymph nodes
  3. NUBEQA [Suspect]
     Active Substance: DAROLUTAMIDE
     Indication: Metastases to bone
  4. GONADORELIN DIACETATE TETRAHYDRATE [Suspect]
     Active Substance: GONADORELIN DIACETATE TETRAHYDRATE
  5. DOCETAXEL [Concomitant]
     Active Substance: DOCETAXEL
     Dosage: 75 MG, Q3WK (3 WEEKS/6 CYCLES)
  6. PREDNISONE [Concomitant]
     Active Substance: PREDNISONE
  7. PREDNISOLONE [Concomitant]
     Active Substance: PREDNISOLONE
  8. DENOSUMAB [Concomitant]
     Active Substance: DENOSUMAB
     Dosage: 120 MG, Q4WK
     Route: 058
  9. CALCIUM [Concomitant]
     Active Substance: CALCIUM

REACTIONS (4)
  - Lymphadenopathy [None]
  - Metastases to lymph nodes [None]
  - Metastases to bone [None]
  - Fatigue [None]
